FAERS Safety Report 8067248-9 (Version None)
Quarter: 2012Q1

REPORT INFORMATION
  Report Type: 
  Country: None (occurrence: None)
  Receive Date: 20120124
  Receipt Date: 20120119
  Transmission Date: 20120608
  Serious: Yes (Hospitalization)
  Sender: FDA-Public Use
  Company Number: US-GLAXOSMITHKLINE-A0962539A

PATIENT
  Age: 49 Year
  Sex: Female

DRUGS (1)
  1. FLOLAN [Suspect]
     Dosage: 46NGKM UNKNOWN
     Route: 065
     Dates: start: 20061024

REACTIONS (1)
  - INFECTIOUS PERITONITIS [None]
